FAERS Safety Report 10056863 (Version 2)
Quarter: 2014Q2

REPORT INFORMATION
  Report Type: Spontaneous
  Country: DE (occurrence: DE)
  Receive Date: 20140403
  Receipt Date: 20140421
  Transmission Date: 20141212
  Serious: Yes (Other)
  Sender: FDA-Public Use
  Company Number: PHHY2014DE038870

PATIENT
  Age: 37 Year
  Sex: Female

DRUGS (6)
  1. CICLOSPORIN [Suspect]
     Indication: URTICARIA
     Dosage: 100 MG, BID
     Dates: start: 201012, end: 201105
  2. CICLOSPORIN [Suspect]
     Dosage: 225 MG, (100MG IN MORNING AND 125 MG) QD
     Dates: start: 201210
  3. FEXOFENADINE [Suspect]
     Indication: URTICARIA
     Dosage: 2 DF, BID
     Dates: start: 201210
  4. CORTISONE [Suspect]
     Indication: PRURITUS GENERALISED
     Dosage: UNK 20 TO 40 MG
  5. RANITIDIN [Concomitant]
     Dosage: 1 DF, BID
     Dates: start: 201210
  6. ENBREL [Concomitant]
     Indication: ANKYLOSING SPONDYLITIS
     Dosage: 1 DF,EVERY 10 DAYS
     Dates: start: 2006

REACTIONS (11)
  - Diabetes mellitus [Recovered/Resolved]
  - Pneumonia [Recovered/Resolved]
  - Leukocytosis [Recovered/Resolved]
  - Depression [Recovered/Resolved]
  - Chest discomfort [Recovered/Resolved]
  - Swelling face [Recovered/Resolved]
  - Throat tightness [Recovered/Resolved]
  - Urticaria [Recovered/Resolved]
  - Pruritus generalised [Recovered/Resolved]
  - Hypertension [Recovered/Resolved]
  - Weight increased [Recovered/Resolved]
